FAERS Safety Report 5725834-2 (Version None)
Quarter: 2008Q2

REPORT INFORMATION
  Report Type: 
  Country: None (occurrence: None)
  Receive Date: 20080429
  Receipt Date: 20080410
  Transmission Date: 20081010
  Serious: No
  Sender: FDA-Public Use
  Company Number: 002#2#2008-00234

PATIENT
  Age: 67 Year
  Sex: Female
  Weight: 87.9978 kg

DRUGS (4)
  1. NEUPRO [Suspect]
     Indication: PARKINSON'S DISEASE
     Dosage: 2MG/24H, 1 IN 1 D, TRANSDERMAL
     Route: 062
     Dates: start: 20080201, end: 20080401
  2. ZELAPAR [Concomitant]
  3. STALEVO 100 [Concomitant]
  4. XANAX [Concomitant]

REACTIONS (5)
  - CONDITION AGGRAVATED [None]
  - DRUG INEFFECTIVE [None]
  - LETHARGY [None]
  - SOMNOLENCE [None]
  - TREMOR [None]
